FAERS Safety Report 11392869 (Version 1)
Quarter: 2015Q3

REPORT INFORMATION
  Report Type: Report from Study
  Country: IN (occurrence: IN)
  Receive Date: 20150818
  Receipt Date: 20150818
  Transmission Date: 20151125
  Serious: Yes (Death, Other)
  Sender: FDA-Public Use
  Company Number: IN-AMGEN-INDNI2015084226

PATIENT
  Age: 46 Year
  Sex: Male

DRUGS (1)
  1. PANITUMUMAB [Suspect]
     Active Substance: PANITUMUMAB
     Indication: COLORECTAL CANCER METASTATIC
     Dosage: 100 MG, UNK
     Route: 065
     Dates: start: 201412

REACTIONS (3)
  - Death [Fatal]
  - Hepatic cirrhosis [Unknown]
  - Jaundice [Unknown]

NARRATIVE: CASE EVENT DATE: 20150508
